FAERS Safety Report 6526185-9 (Version None)
Quarter: 2009Q4

REPORT INFORMATION
  Report Type: 
  Country: None (occurrence: None)
  Receive Date: 20091228
  Receipt Date: 20091218
  Transmission Date: 20100525
  Serious: Yes (Hospitalization)
  Sender: FDA-Public Use
  Company Number: 234967J09USA

PATIENT
  Age: 54 Year
  Sex: Male
  Weight: 86 kg

DRUGS (3)
  1. REBIF [Suspect]
     Indication: MULTIPLE SCLEROSIS
     Dosage: 44 MCG, 3 IN 1 WEEKS, SUBCUTANEOUS
     Route: 058
     Dates: start: 20090805
  2. OTHER UNSPECIFIED MEDICATIONS (ALL OTHER THERAPEUTIC PRODUCTS) [Concomitant]
  3. SOLU-MEDROL [Concomitant]

REACTIONS (3)
  - BLOOD GLUCOSE INCREASED [None]
  - MOVEMENT DISORDER [None]
  - SENSORY DISTURBANCE [None]
